FAERS Safety Report 6442411-9 (Version None)
Quarter: 2009Q4

REPORT INFORMATION
  Report Type: 
  Country: None (occurrence: None)
  Receive Date: 20091112
  Receipt Date: 20091029
  Transmission Date: 20100525
  Serious: Yes (Hospitalization)
  Sender: FDA-Public Use
  Company Number: 220049J09GBR

PATIENT
  Age: 12 Year
  Sex: Female

DRUGS (1)
  1. SAIZEN [Suspect]
     Dosage: 1.2 MG
     Dates: start: 20090130

REACTIONS (3)
  - ADRENOCORTICAL INSUFFICIENCY ACUTE [None]
  - LOBAR PNEUMONIA [None]
  - SEPTIC SHOCK [None]
